FAERS Safety Report 10648749 (Version 1)
Quarter: 2014Q4

REPORT INFORMATION
  Report Type: Spontaneous
  Country: US (occurrence: None)
  Receive Date: 20141205
  Receipt Date: 20141205
  Transmission Date: 20150529
  Serious: No
  Sender: FDA-Public Use
  Company Number: 163-POMAL-14083604

PATIENT
  Age: 64 Year
  Sex: Female
  Weight: 72.6 kg

DRUGS (11)
  1. IOPHEN-C NR (CHERACOL/00693301/)(UKNOWN) [Concomitant]
  2. TRAMADOL ACETAMINOPHEN (ULTRACET) [Concomitant]
  3. POMALYST [Suspect]
     Active Substance: POMALIDOMIDE
     Indication: PLASMA CELL MYELOMA
     Dosage: 4 MG, 21 IN 21 D, PO
     Route: 048
     Dates: start: 20141008
  4. VEM;AFAXOME HCL (VENLAFAXINE HYDROCHLORIDE) [Concomitant]
  5. DEXAMETHASONE(DEXAMETHASONE) [Concomitant]
  6. AZITHROMYCIN(AZITHROMYCIN) [Concomitant]
  7. DIPHENOXYLATE ATROPINE(LOMOTIL/00034001/) [Concomitant]
  8. KLOR-CON(POTASSIUM CHLORIDE) [Concomitant]
  9. BENZONATATE(BENZONATATE [Concomitant]
  10. VITAMIN D2(ERGOCALCIFEROL)(UKNOWN) [Concomitant]
  11. TOBRAMYCIN AND DEXAMETHASONE(TOBRADEX)(0.3 PERCENT) [Concomitant]

REACTIONS (2)
  - Diarrhoea [None]
  - Tooth extraction [None]

NARRATIVE: CASE EVENT DATE: 20131008
